FAERS Safety Report 25814687 (Version 4)
Quarter: 2025Q4

REPORT INFORMATION
  Report Type: Report from Study
  Country: EU (occurrence: EU)
  Receive Date: 20250917
  Receipt Date: 20251019
  Transmission Date: 20260117
  Serious: Yes (Hospitalization)
  Sender: ABBVIE
  Company Number: EU-ABBVIE-6462760

PATIENT
  Age: 77 Year
  Sex: Female

DRUGS (3)
  1. DUOPA [Suspect]
     Active Substance: CARBIDOPA\LEVODOPA
     Indication: Parkinson^s disease
     Route: 050
     Dates: start: 20191219, end: 202509
  2. DUOPA [Suspect]
     Active Substance: CARBIDOPA\LEVODOPA
     Dosage: THERAPY END DATE SEP 2025
     Route: 050
     Dates: start: 202509
  3. DUOPA [Suspect]
     Active Substance: CARBIDOPA\LEVODOPA
     Dosage: THERAPY START DATE SEP 2025, CR DOSE LOWERED.
     Route: 050

REACTIONS (8)
  - Urinary tract infection [Recovering/Resolving]
  - Seizure [Recovered/Resolved]
  - Hypotension [Recovered/Resolved]
  - Anaemia [Recovering/Resolving]
  - Dyskinesia [Not Recovered/Not Resolved]
  - Hallucination [Recovered/Resolved]
  - Vitamin B12 deficiency [Unknown]
  - Folate deficiency [Unknown]

NARRATIVE: CASE EVENT DATE: 20250901
